FAERS Safety Report 7920605-0 (Version None)
Quarter: 2011Q4

REPORT INFORMATION
  Report Type: 
  Country: None (occurrence: None)
  Receive Date: 20111117
  Receipt Date: 20111111
  Transmission Date: 20120403
  Serious: Yes (Other)
  Sender: FDA-Public Use
  Company Number: PHHY2011KR96117

PATIENT
  Sex: Female

DRUGS (2)
  1. GLEEVEC [Suspect]
     Indication: CHRONIC MYELOID LEUKAEMIA
     Dosage: 400 MG, DAILY
     Route: 048
     Dates: start: 20100219, end: 20111019
  2. GLEEVEC [Suspect]
     Dosage: 400 MG, DAILY

REACTIONS (3)
  - LIMB INJURY [None]
  - ACCIDENT [None]
  - THROMBOCYTOPENIA [None]
